FAERS Safety Report 6235178-0 (Version None)
Quarter: 2009Q2

REPORT INFORMATION
  Report Type: 
  Country: None (occurrence: None)
  Receive Date: 20090615
  Receipt Date: 20090608
  Transmission Date: 20091009
  Serious: Yes (Other)
  Sender: FDA-Public Use
  Company Number: ADR2992009

PATIENT
  Age: 57 Year
  Sex: Female

DRUGS (2)
  1. ALENDRONATE SODIUM [Suspect]
     Indication: OSTEOPOROSIS PROPHYLAXIS
     Dosage: 10 MG, ORAL
     Route: 048
     Dates: start: 20060101, end: 20081001
  2. ARIMIDEX [Concomitant]

REACTIONS (1)
  - GLAUCOMA [None]
